FAERS Safety Report 20100504 (Version 2)
Quarter: 2021Q4

REPORT INFORMATION
  Report Type: Report from Study
  Country: US (occurrence: US)
  Receive Date: 20211123
  Receipt Date: 20211207
  Transmission Date: 20220303
  Serious: No
  Sender: FDA-Public Use
  Company Number: US-SUN PHARMACEUTICAL INDUSTRIES LTD-2021R1-317621

PATIENT
  Age: 65 Year
  Sex: Female

DRUGS (1)
  1. CLOZAPINE [Suspect]
     Active Substance: CLOZAPINE
     Indication: Product used for unknown indication
     Dosage: UNK UNK, DAILY
     Route: 048

REACTIONS (1)
  - No adverse event [Unknown]

NARRATIVE: CASE EVENT DATE: 20211103
